FAERS Safety Report 25559562 (Version 1)
Quarter: 2025Q3

REPORT INFORMATION
  Report Type: Spontaneous
  Country: US (occurrence: US)
  Receive Date: 20250715
  Receipt Date: 20250715
  Transmission Date: 20251021
  Serious: No
  Sender: NOVO NORDISK
  Company Number: US-NOVOPROD-1419711

PATIENT
  Sex: Female

DRUGS (1)
  1. OZEMPIC [Suspect]
     Active Substance: SEMAGLUTIDE
     Indication: Diabetes mellitus
     Dates: start: 202404

REACTIONS (6)
  - Weight decreased [Unknown]
  - Weight loss poor [Unknown]
  - Dyspepsia [Unknown]
  - Dyspepsia [Recovered/Resolved]
  - Constipation [Recovered/Resolved]
  - Drug effect less than expected [Unknown]
